FAERS Safety Report 6203057-0 (Version None)
Quarter: 2009Q2

REPORT INFORMATION
  Report Type: 
  Country: None (occurrence: None)
  Receive Date: 20090521
  Receipt Date: 20090521
  Transmission Date: 20091009
  Serious: Yes (Death, Life-Threatening, Hospitalization, Disabling)
  Sender: FDA-Public Use
  Company Number: None

PATIENT
  Age: 51 Year
  Sex: Male
  Weight: 82 kg

DRUGS (3)
  1. BEVACIZUMAB 10MG/KG GENENTECH [Suspect]
     Indication: PANCREATIC CARCINOMA METASTATIC
     Dosage: 710MG Q2WKS IV
     Route: 042
     Dates: start: 20071025, end: 20080717
  2. GEMCITABINE [Concomitant]
  3. DOCETAXEL [Concomitant]

REACTIONS (8)
  - ANAEMIA [None]
  - ANOREXIA [None]
  - HEPATOMEGALY [None]
  - LIVER ABSCESS [None]
  - NAUSEA [None]
  - PYREXIA [None]
  - STREPTOCOCCAL BACTERAEMIA [None]
  - WEIGHT DECREASED [None]
